FAERS Safety Report 9402533 (Version 1)
Quarter: 2013Q3

REPORT INFORMATION
  Report Type: Spontaneous
  Country: US (occurrence: US)
  Receive Date: 20130716
  Receipt Date: 20130716
  Transmission Date: 20140515
  Serious: Yes (Hospitalization)
  Sender: FDA-Public Use
  Company Number: US-ASTRAZENECA-2013SE51045

PATIENT
  Age: 42 Year
  Sex: Male
  Weight: 86.2 kg

DRUGS (1)
  1. NEXIUM [Suspect]
     Indication: GASTROOESOPHAGEAL REFLUX DISEASE
     Route: 048
     Dates: start: 2005, end: 2013

REACTIONS (3)
  - Gastrooesophageal reflux disease [Unknown]
  - Vomiting [Unknown]
  - Intentional drug misuse [Unknown]
